FAERS Safety Report 16830879 (Version 1)
Quarter: 2019Q3

REPORT INFORMATION
  Report Type: Spontaneous
  Country: US (occurrence: US)
  Receive Date: 20190920
  Receipt Date: 20190920
  Transmission Date: 20191005
  Serious: No
  Sender: FDA-Public Use
  Company Number: US-009507513-1909USA005311

PATIENT
  Age: 24 Year
  Sex: Female
  Weight: 58.96 kg

DRUGS (1)
  1. NEXPLANON [Suspect]
     Active Substance: ETONOGESTREL
     Indication: CONTRACEPTION
     Dosage: IMPLANT, 3 YEARS, LEFT ARM
     Route: 059
     Dates: start: 20190309

REACTIONS (2)
  - Menorrhagia [Unknown]
  - Rash [Unknown]

NARRATIVE: CASE EVENT DATE: 2019
